FAERS Safety Report 15627077 (Version 5)
Quarter: 2020Q1

REPORT INFORMATION
  Report Type: Report from Study
  Country: US (occurrence: US)
  Receive Date: 20181116
  Receipt Date: 20200226
  Transmission Date: 20200409
  Serious: No
  Sender: FDA-Public Use
  Company Number: PHEH2018US047602

PATIENT
  Sex: Female

DRUGS (1)
  1. GILENYA [Suspect]
     Active Substance: FINGOLIMOD HYDROCHLORIDE
     Indication: MULTIPLE SCLEROSIS
     Dosage: 0.5 MG, QD
     Route: 048

REACTIONS (17)
  - Fall [Unknown]
  - Vitamin D decreased [Unknown]
  - Limb discomfort [Unknown]
  - Insomnia [Unknown]
  - Headache [Unknown]
  - Movement disorder [Unknown]
  - Anxiety [Unknown]
  - Psychiatric symptom [Unknown]
  - Depressed mood [Unknown]
  - Fear [Unknown]
  - Peripheral swelling [Unknown]
  - Pain in extremity [Unknown]
  - Hypertension [Unknown]
  - Contusion [Unknown]
  - Hypoaesthesia [Unknown]
  - Mobility decreased [Unknown]
  - Depression [Unknown]
